FAERS Safety Report 6766855-0 (Version None)
Quarter: 2010Q2

REPORT INFORMATION
  Report Type: 
  Country: None (occurrence: None)
  Receive Date: 20100609
  Receipt Date: 20100524
  Transmission Date: 20101027
  Serious: Yes (Hospitalization)
  Sender: FDA-Public Use
  Company Number: 1000014258

PATIENT
  Age: 76 Year
  Sex: Female

DRUGS (2)
  1. MILNACIPRAN (MILNACIPRAN HYDROCHLORIDE) (TABLETS) [Suspect]
     Indication: DEPRESSION
     Dosage: 100 MG (100 MG, 1 IN 1 D), ORAL
     Route: 048
  2. RISPERIDONE [Suspect]
     Indication: DEPRESSION
     Dosage: 2 MG (2 MG, 1 IN 1 D), ORAL
     Route: 048

REACTIONS (6)
  - AKATHISIA [None]
  - APATHY [None]
  - BRADYKINESIA [None]
  - DEPRESSION [None]
  - INSOMNIA [None]
  - PARKINSON'S DISEASE [None]
